FAERS Safety Report 11516326 (Version 1)
Quarter: 2015Q3

REPORT INFORMATION
  Report Type: Spontaneous
  Country: CH (occurrence: None)
  Receive Date: 20150915
  Receipt Date: 20150915
  Transmission Date: 20151125
  Serious: Yes (Other)
  Sender: FDA-Public Use
  Company Number: CH-LHC-2015116

PATIENT
  Age: 50 Year
  Sex: Male

DRUGS (2)
  1. MULTIPLE DRUGS [Concomitant]
     Active Substance: UNSPECIFIED INGREDIENT
  2. OXYGEN (GENERIC) (OXYGEN) (INHALATION GAS) (OXYGEN) (VERUM) [Suspect]
     Active Substance: OXYGEN
     Indication: HYPOXIA
     Route: 055

REACTIONS (4)
  - Treatment noncompliance [None]
  - Burns third degree [None]
  - Burns second degree [None]
  - Wrong technique in product usage process [None]
